FAERS Safety Report 23371069 (Version 2)
Quarter: 2025Q2

REPORT INFORMATION
  Report Type: Spontaneous
  Country: US (occurrence: US)
  Receive Date: 20240105
  Receipt Date: 20250409
  Transmission Date: 20250716
  Serious: No
  Sender: SANOFI AVENTIS
  Company Number: US-SA-SAC20240104000997

PATIENT
  Age: 56 Year
  Sex: Male

DRUGS (1)
  1. REZUROCK [Suspect]
     Active Substance: BELUMOSUDIL
     Indication: Peripheral T-cell lymphoma unspecified
     Dosage: 200 MG, QD
     Route: 048
     Dates: start: 20230612

REACTIONS (6)
  - Dry skin [Unknown]
  - Renal disorder [Unknown]
  - Musculoskeletal discomfort [Unknown]
  - Sinusitis [Recovered/Resolved]
  - Labyrinthitis [Recovered/Resolved]
  - Product use in unapproved indication [Unknown]

NARRATIVE: CASE EVENT DATE: 20230101
